FAERS Safety Report 9231863 (Version 2)
Quarter: 2013Q2

REPORT INFORMATION
  Report Type: Spontaneous
  Country: US (occurrence: US)
  Receive Date: 20130415
  Receipt Date: 20130416
  Transmission Date: 20140414
  Serious: Yes (Other)
  Sender: FDA-Public Use
  Company Number: US-PURDUE-USA-2013-0100556

PATIENT
  Age: 46 Year
  Sex: Female

DRUGS (8)
  1. BUTRANS [Suspect]
     Indication: BACK PAIN
     Dosage: 20 MCG/HR, UNK
     Route: 062
  2. BUTRANS [Suspect]
     Dosage: 10 MCG/HR, DAILY
     Route: 062
  3. LISINOPRIL [Concomitant]
     Indication: BLOOD PRESSURE ABNORMAL
     Dosage: 50 MG, DAILY
  4. NORCO [Concomitant]
     Indication: BREAKTHROUGH PAIN
     Dosage: 10 MG, TID
     Route: 048
  5. PRILOSEC                           /00661201/ [Concomitant]
     Indication: GASTROOESOPHAGEAL REFLUX DISEASE
     Dosage: 40 MG, DAILY
  6. ATIVAN [Concomitant]
     Indication: PANIC DISORDER
     Dosage: 2 MG, QID
  7. ATIVAN [Concomitant]
     Indication: ANXIETY DISORDER
  8. LYRICA [Concomitant]
     Indication: NEURALGIA
     Dosage: 200 MG, AM

REACTIONS (15)
  - Application site pain [Recovered/Resolved]
  - Myalgia [Recovered/Resolved]
  - Device leakage [Unknown]
  - Product adhesion issue [Unknown]
  - Application site erythema [Unknown]
  - Application site irritation [Recovered/Resolved]
  - Malaise [Unknown]
  - Nausea [Recovered/Resolved]
  - Dizziness [Recovered/Resolved]
  - Tremor [Recovered/Resolved]
  - Application site pruritus [Unknown]
  - Application site swelling [Recovered/Resolved]
  - Inadequate analgesia [Recovered/Resolved]
  - Nervousness [Recovered/Resolved]
  - Headache [Recovered/Resolved]
